FAERS Safety Report 11677537 (Version 3)
Quarter: 2016Q2

REPORT INFORMATION
  Report Type: Spontaneous
  Country: US (occurrence: US)
  Receive Date: 20151028
  Receipt Date: 20160519
  Transmission Date: 20160815
  Serious: Yes (Other)
  Sender: FDA-Public Use
  Company Number: US-TEVA-604001USA

PATIENT
  Age: 50 Year
  Sex: Female

DRUGS (1)
  1. ZECUITY [Suspect]
     Active Substance: SUMATRIPTAN SUCCINATE
     Indication: MIGRAINE
     Route: 062
     Dates: start: 20151019, end: 20151019

REACTIONS (6)
  - Application site erythema [Recovered/Resolved]
  - Application site irritation [Recovered/Resolved]
  - Drug effect incomplete [Unknown]
  - Application site burn [Recovered/Resolved]
  - Application site discomfort [Recovered/Resolved]
  - Application site inflammation [Recovered/Resolved]

NARRATIVE: CASE EVENT DATE: 20151019
